FAERS Safety Report 7963423-X (Version None)
Quarter: 2011Q4

REPORT INFORMATION
  Report Type: 
  Country: None (occurrence: None)
  Receive Date: 20111205
  Receipt Date: 20110131
  Transmission Date: 20120403
  Serious: Yes (Other)
  Sender: FDA-Public Use
  Company Number: 2011CP000020

PATIENT
  Age: 60 Year
  Sex: Female

DRUGS (6)
  1. PANTOPRAZOLE SODIUM [Concomitant]
  2. LACTULOSE [Concomitant]
  3. ACETAMINOPHEN [Suspect]
     Indication: PAIN
     Dosage: 1 GM; 3/1 DAY; IV
     Route: 042
     Dates: start: 20100820, end: 20100830
  4. DEXAMETHASONE [Concomitant]
  5. PHENYTOIN [Concomitant]
  6. LORAZEPAM [Concomitant]

REACTIONS (3)
  - HEPATOTOXICITY [None]
  - ASPARTATE AMINOTRANSFERASE INCREASED [None]
  - DRUG INTERACTION [None]
